FAERS Safety Report 9602038 (Version 6)
Quarter: 2013Q4

REPORT INFORMATION
  Report Type: Report from Study
  Country: CA (occurrence: CA)
  Receive Date: 20131007
  Receipt Date: 20131126
  Transmission Date: 20140711
  Serious: Yes (Hospitalization)
  Sender: FDA-Public Use
  Company Number: PHHY2013CA088624

PATIENT
  Age: 74 Year
  Sex: Female

DRUGS (1)
  1. SANDOSTATIN LAR [Suspect]
     Indication: COLON CANCER
     Dosage: 20 MG, ONCE EVERY 3 WEEKS
     Route: 030
     Dates: start: 20130423

REACTIONS (5)
  - Procedural pain [Unknown]
  - Malaise [Unknown]
  - Diarrhoea [Unknown]
  - Blood pressure diastolic increased [Unknown]
  - Heart rate increased [Unknown]
